FAERS Safety Report 5087495-8 (Version None)
Quarter: 2006Q3

REPORT INFORMATION
  Report Type: 
  Country: None (occurrence: None)
  Receive Date: 20060824
  Receipt Date: 20060814
  Transmission Date: 20061208
  Serious: Yes (Other)
  Sender: FDA-Public Use
  Company Number: GB-BRISTOL-MYERS SQUIBB COMPANY-13477039

PATIENT
  Age: 62 Year
  Sex: Female

DRUGS (4)
  1. GLUCOPHAGE XR [Suspect]
     Indication: DIABETES MELLITUS NON-INSULIN-DEPENDENT
     Route: 048
     Dates: start: 20060401, end: 20060501
  2. PRAVASTATIN SODIUM [Concomitant]
     Indication: HYPERLIPIDAEMIA
  3. GLICLAZIDE [Concomitant]
  4. AMLODIPINE [Concomitant]

REACTIONS (3)
  - FATIGUE [None]
  - LETHARGY [None]
  - PERFORMANCE STATUS DECREASED [None]
